FAERS Safety Report 20706406 (Version 3)
Quarter: 2025Q4

REPORT INFORMATION
  Report Type: Spontaneous
  Country: US (occurrence: None)
  Receive Date: 20220413
  Receipt Date: 20251210
  Transmission Date: 20260118
  Serious: No
  Sender: INCYTE
  Company Number: US-INCYTE CORPORATION-2022IN003434

PATIENT
  Age: 71 Year

DRUGS (1)
  1. JAKAFI [Suspect]
     Active Substance: RUXOLITINIB
     Indication: Myeloproliferative neoplasm
     Dosage: 10 MILLIGRAM, BID

REACTIONS (4)
  - Weight increased [Not Recovered/Not Resolved]
  - Mental disorder [Unknown]
  - General physical condition abnormal [Unknown]
  - Off label use [Unknown]
